FAERS Safety Report 17430857 (Version 4)
Quarter: 2022Q1

REPORT INFORMATION
  Report Type: Other
  Country: CA (occurrence: None)
  Receive Date: 20200218
  Receipt Date: 20220228
  Transmission Date: 20220423
  Serious: No
  Sender: FDA-Public Use
  Company Number: CA-ROCHE-2551732

PATIENT
  Age: 50 Year
  Sex: Female

DRUGS (3)
  1. OCREVUS [Suspect]
     Active Substance: OCRELIZUMAB
     Indication: Relapsing-remitting multiple sclerosis
     Dosage: 300 MG ON DAY 0 AND DAY 14, THEN 600 MG ONCE IN 6 MONTHS
     Route: 042
     Dates: start: 20181108
  2. OCREVUS [Suspect]
     Active Substance: OCRELIZUMAB
     Dosage: 600MG IN 500CC OF NACL?SUBSEQUENT DATE OF TREATMENTS: 31/JUL/2021
     Route: 042
     Dates: start: 20190507
  3. VALTREX [Concomitant]
     Active Substance: VALACYCLOVIR HYDROCHLORIDE
     Dosage: 1000MG AT BEDTIME DAILY PROPHYLACTICALLY, INCREASED IT TO TWICE DAILY FOR 5 DAYS

REACTIONS (7)
  - Herpes zoster [Recovered/Resolved]
  - Urinary tract infection [Recovered/Resolved]
  - Chills [Not Recovered/Not Resolved]
  - Pain [Not Recovered/Not Resolved]
  - Influenza [Not Recovered/Not Resolved]
  - Herpes zoster [Not Recovered/Not Resolved]
  - Neuralgia [Not Recovered/Not Resolved]

NARRATIVE: CASE EVENT DATE: 20191201
